FAERS Safety Report 24340746 (Version 1)
Quarter: 2024Q3

REPORT INFORMATION
  Report Type: Spontaneous
  Country: GT (occurrence: GT)
  Receive Date: 20240919
  Receipt Date: 20240919
  Transmission Date: 20241017
  Serious: Yes (Death)
  Sender: ELI LILLY AND CO
  Company Number: GT-ELI_LILLY_AND_COMPANY-GT202409010435

PATIENT
  Sex: Female

DRUGS (1)
  1. VERZENIO [Suspect]
     Active Substance: ABEMACICLIB
     Indication: Product used for unknown indication
     Dosage: UNK UNK, UNKNOWN
     Route: 065

REACTIONS (2)
  - Accident [Fatal]
  - Diarrhoea [Unknown]
